FAERS Safety Report 10166855 (Version 1)
Quarter: 2014Q2

REPORT INFORMATION
  Report Type: Spontaneous
  Country: US (occurrence: None)
  Receive Date: 20140509
  Receipt Date: 20140509
  Transmission Date: 20141212
  Serious: Yes (Disabling)
  Sender: FDA-Public Use
  Company Number: None

PATIENT
  Sex: Female

DRUGS (1)
  1. CIPROFLOXACIN [Suspect]
     Indication: ILL-DEFINED DISORDER
     Dates: start: 20130530, end: 20130604

REACTIONS (10)
  - Neck pain [None]
  - Pain [None]
  - Neuralgia [None]
  - Arthralgia [None]
  - Musculoskeletal pain [None]
  - Fatigue [None]
  - Hyperaesthesia [None]
  - Gait disturbance [None]
  - Fibromyalgia [None]
  - Multiple sclerosis [None]
